FAERS Safety Report 24073829 (Version 2)
Quarter: 2024Q3

REPORT INFORMATION
  Report Type: Spontaneous
  Country: US (occurrence: US)
  Receive Date: 20240710
  Receipt Date: 20240723
  Transmission Date: 20241017
  Serious: No
  Sender: BAYER
  Company Number: US-BAYER-2024A096250

PATIENT
  Age: 34 Year
  Sex: Female

DRUGS (3)
  1. SKYLA [Suspect]
     Active Substance: LEVONORGESTREL
     Dosage: 14?G/DAY
     Route: 015
     Dates: start: 2016
  2. TYLENOL [Concomitant]
     Active Substance: ACETAMINOPHEN
  3. ADVIL [Concomitant]
     Active Substance: IBUPROFEN\IBUPROFEN SODIUM

REACTIONS (6)
  - Abdominal pain lower [Not Recovered/Not Resolved]
  - Device use issue [None]
  - Psychotic disorder [None]
  - Confusional state [None]
  - Urinary tract infection [None]
  - Post-acute COVID-19 syndrome [None]

NARRATIVE: CASE EVENT DATE: 20210101
